FAERS Safety Report 25961403 (Version 1)
Quarter: 2025Q4

REPORT INFORMATION
  Report Type: Report from Study
  Country: MX (occurrence: MX)
  Receive Date: 20251027
  Receipt Date: 20251027
  Transmission Date: 20260118
  Serious: Yes (Other)
  Sender: SANOFI AVENTIS
  Company Number: MX-SA-2025SA314444

PATIENT
  Age: 77 Year
  Sex: Female

DRUGS (2)
  1. INSULIN GLARGINE [Suspect]
     Active Substance: INSULIN GLARGINE
     Indication: Type 2 diabetes mellitus
     Dosage: UNK
     Route: 058
     Dates: start: 201805
  2. INSULIN GLARGINE [Suspect]
     Active Substance: INSULIN GLARGINE
     Dosage: 10 U IN THE MORNING AND 20 U IN THE EVENING BID
     Route: 058
     Dates: start: 201805

REACTIONS (6)
  - Ophthalmoplegia [Unknown]
  - Trigeminal nerve disorder [Unknown]
  - Cardiac pacemaker insertion [Unknown]
  - Blood glucose increased [Unknown]
  - Herpes virus infection [Unknown]
  - Off label use [Unknown]

NARRATIVE: CASE EVENT DATE: 20180501
